FAERS Safety Report 12679553 (Version 1)
Quarter: 2016Q3

REPORT INFORMATION
  Report Type: Report from Study
  Country: US (occurrence: US)
  Receive Date: 20160824
  Receipt Date: 20160824
  Transmission Date: 20161109
  Serious: Yes (Other)
  Sender: FDA-Public Use
  Company Number: US-AMGEN-USASL2016106746

PATIENT
  Age: 65 Year
  Sex: Male

DRUGS (1)
  1. ENBREL [Suspect]
     Active Substance: ETANERCEPT
     Indication: PSORIASIS
     Dosage: 50 MG, 2 TIMES/WK, ON THURSDAY AND MONDAY
     Route: 065
     Dates: start: 20160728

REACTIONS (9)
  - Diabetes mellitus [Not Recovered/Not Resolved]
  - Cardiac pacemaker insertion [Unknown]
  - Psoriasis [Unknown]
  - Drug dose omission [Unknown]
  - Corrective lens user [Unknown]
  - Obesity [Not Recovered/Not Resolved]
  - Chronic obstructive pulmonary disease [Not Recovered/Not Resolved]
  - Sleep apnoea syndrome [Unknown]
  - Pruritus generalised [Not Recovered/Not Resolved]

NARRATIVE: CASE EVENT DATE: 2016
